FAERS Safety Report 4652631-1 (Version None)
Quarter: 2005Q2

REPORT INFORMATION
  Report Type: 
  Country: None (occurrence: None)
  Receive Date: 20050502
  Receipt Date: 20050416
  Transmission Date: 20051028
  Serious: Yes (Other)
  Sender: FDA-Public Use
  Company Number: A-CH2005-09539

PATIENT
  Age: 9 Year
  Sex: Female

DRUGS (2)
  1. ZAVESCA [Suspect]
     Indication: TAY-SACHS DISEASE
     Dosage: SEE IMAGE
     Route: 048
     Dates: start: 20030710, end: 20041107
  2. ZAVESCA [Suspect]
     Indication: TAY-SACHS DISEASE
     Dosage: SEE IMAGE
     Route: 048
     Dates: start: 20041108

REACTIONS (2)
  - FEMUR FRACTURE [None]
  - OFF LABEL USE [None]
